FAERS Safety Report 4692242-5 (Version None)
Quarter: 2005Q2

REPORT INFORMATION
  Report Type: 
  Country: None (occurrence: None)
  Receive Date: 20050614
  Receipt Date: 20050530
  Transmission Date: 20051028
  Serious: Yes (Other)
  Sender: FDA-Public Use
  Company Number: DE-2005-008047

PATIENT
  Age: 47 Year
  Sex: Female

DRUGS (1)
  1. YASMIN [Suspect]
     Dosage: ORAL
     Route: 048
     Dates: start: 20020501

REACTIONS (4)
  - CREATININE RENAL CLEARANCE DECREASED [None]
  - GLOMERULAR FILTRATION RATE DECREASED [None]
  - MIGRAINE [None]
  - PROTEIN URINE PRESENT [None]
